FAERS Safety Report 8738592 (Version 2)
Quarter: 2012Q4

REPORT INFORMATION
  Report Type: 
  Country: US (occurrence: US)
  Receive Date: 20120823
  Receipt Date: 20120913
  Transmission Date: 20130627
  Serious: Yes (Hospitalization)
  Sender: FDA-Public Use
  Company Number: PHEH2012US016466

PATIENT
  Age: 51 Year
  Sex: Male

DRUGS (8)
  1. TASIGNA [Suspect]
     Indication: CHRONIC MYELOID LEUKAEMIA
     Dosage: 400 mg, BID
     Route: 048
     Dates: start: 20120726
  2. METFORMIN [Concomitant]
  3. COREG [Concomitant]
  4. NIASPAN [Concomitant]
  5. ZOCOR [Concomitant]
  6. ASA [Concomitant]
  7. ZYLORIC [Concomitant]
  8. COUMADIN [Concomitant]

REACTIONS (3)
  - Cardiac failure congestive [Unknown]
  - Dyspnoea [Recovered/Resolved]
  - Fluid retention [Unknown]
